FAERS Safety Report 7987699-8 (Version None)
Quarter: 2011Q4

REPORT INFORMATION
  Report Type: 
  Country: None (occurrence: None)
  Receive Date: 20111216
  Receipt Date: 20110427
  Transmission Date: 20120403
  Serious: No
  Sender: FDA-Public Use
  Company Number: US-BRISTOL-MYERS SQUIBB COMPANY-15703085

PATIENT
  Age: 53 Year
  Sex: Male
  Weight: 88 kg

DRUGS (3)
  1. REMERON [Concomitant]
  2. CYMBALTA [Concomitant]
  3. ABILIFY [Suspect]
     Indication: DEPRESSION
     Dates: start: 20110418

REACTIONS (2)
  - INSOMNIA [None]
  - RESTLESSNESS [None]
